FAERS Safety Report 6033265-3 (Version None)
Quarter: 2009Q1

REPORT INFORMATION
  Report Type: 
  Country: None (occurrence: None)
  Receive Date: 20090109
  Receipt Date: 20090109
  Transmission Date: 20090719
  Serious: Yes (Other)
  Sender: FDA-Public Use
  Company Number: ES-JNJFOC-20090101453

PATIENT
  Age: 34 Year
  Sex: Female

DRUGS (1)
  1. TAVANIC [Suspect]
     Indication: SINUSITIS
     Route: 048

REACTIONS (3)
  - MUSCLE CONTRACTURE [None]
  - PALATAL OEDEMA [None]
  - PARAESTHESIA [None]
